FAERS Safety Report 5408201-0 (Version None)
Quarter: 2007Q3

REPORT INFORMATION
  Report Type: 
  Country: None (occurrence: None)
  Receive Date: 20070808
  Receipt Date: 20070727
  Transmission Date: 20080115
  Serious: Yes (Hospitalization)
  Sender: FDA-Public Use
  Company Number: MX-ELI_LILLY_AND_COMPANY-MX200707006692

PATIENT
  Age: 29 Year
  Sex: Female

DRUGS (3)
  1. ZYPREXA [Suspect]
     Indication: SCHIZOPHRENIA
     Dosage: 15 MG, UNK
     Dates: start: 19960101
  2. ZYPREXA [Suspect]
     Dosage: 20 MG, UNK
     Dates: start: 20070601, end: 20070601
  3. ZYPREXA [Suspect]
     Dosage: 30 MG, UNK
     Route: 048
     Dates: start: 20070601

REACTIONS (5)
  - COLONIC POLYP [None]
  - OVERDOSE [None]
  - PYREXIA [None]
  - STUPOR [None]
  - URINARY TRACT INFECTION [None]
